FAERS Safety Report 6497667-3 (Version None)
Quarter: 2009Q4

REPORT INFORMATION
  Report Type: 
  Country: None (occurrence: None)
  Receive Date: 20091215
  Receipt Date: 20091203
  Transmission Date: 20100525
  Serious: Yes (Death, Life-Threatening, Hospitalization, Disabling, Other)
  Sender: FDA-Public Use
  Company Number: DK-ELI_LILLY_AND_COMPANY-DK200911001923

PATIENT
  Sex: Female
  Weight: 65.8 kg

DRUGS (5)
  1. TERIPARATIDE [Suspect]
     Indication: OSTEOPOROSIS
     Dosage: 20 UG, DAILY (1/D)
     Dates: start: 20081202, end: 20090206
  2. SPIREX [Concomitant]
     Indication: ASCITES
     Dosage: 250 MG, UNK
     Dates: start: 20060501
  3. LANSOPRAZOL A [Concomitant]
     Indication: GASTRIC ULCER
     Dosage: 30 MG, UNK
     Dates: start: 20060301
  4. CITALOPRAM HYDROBROMIDE [Concomitant]
     Indication: DEPRESSION
     Dosage: 20 MG, UNK
     Dates: start: 20060101
  5. FURIX [Concomitant]
     Indication: OEDEMA PERIPHERAL
     Dosage: 120 MG, UNK
     Dates: start: 20060501

REACTIONS (1)
  - HEPATIC CIRRHOSIS [None]
